FAERS Safety Report 9010501 (Version 1)
Quarter: 2013Q1

REPORT INFORMATION
  Report Type: Spontaneous
  Country: US (occurrence: US)
  Receive Date: 20130109
  Receipt Date: 20130109
  Transmission Date: 20140127
  Serious: Yes (Death)
  Sender: FDA-Public Use
  Company Number: US-ASTRAZENECA-2013SE01467

PATIENT
  Age: 40 Year
  Sex: Female

DRUGS (6)
  1. QUETIAPINE [Suspect]
     Route: 048
  2. BENZODIAZEPINE [Suspect]
  3. OXYCODONE [Suspect]
  4. PAROXETINE [Suspect]
  5. CEPHALEXIN [Suspect]
  6. ALPRAZOLAM [Suspect]

REACTIONS (2)
  - Toxicity to various agents [Fatal]
  - Cardio-respiratory arrest [Fatal]
